FAERS Safety Report 12491318 (Version 1)
Quarter: 2016Q2

REPORT INFORMATION
  Report Type: Spontaneous
  Country: IN (occurrence: IN)
  Receive Date: 20160623
  Receipt Date: 20160623
  Transmission Date: 20160815
  Serious: Yes (Other)
  Sender: FDA-Public Use
  Company Number: IN-SUN PHARMACEUTICAL INDUSTRIES LTD-2016R1-118841

PATIENT
  Age: 26 Year
  Sex: Female

DRUGS (3)
  1. TOPIRAMATE. [Interacting]
     Active Substance: TOPIRAMATE
     Indication: HEADACHE
     Dosage: 25 MG, DAILY
     Route: 065
  2. VALPROIC ACID. [Suspect]
     Active Substance: VALPROIC ACID
     Indication: BIPOLAR DISORDER
     Dosage: 700 MG, DAILY
     Route: 065
  3. TOPIRAMATE. [Interacting]
     Active Substance: TOPIRAMATE
     Indication: HEADACHE
     Dosage: 37.5 MG, DAILY
     Route: 065

REACTIONS (3)
  - Bipolar disorder [Recovered/Resolved]
  - Psychotic behaviour [Recovered/Resolved]
  - Drug interaction [Recovered/Resolved]
